FAERS Safety Report 7244189-8 (Version None)
Quarter: 2011Q1

REPORT INFORMATION
  Report Type: 
  Country: None (occurrence: None)
  Receive Date: 20110125
  Receipt Date: 20110119
  Transmission Date: 20110831
  Serious: No
  Sender: FDA-Public Use
  Company Number: US-PFIZER INC-2011013533

PATIENT
  Sex: Female
  Weight: 54.422 kg

DRUGS (3)
  1. COREG [Concomitant]
     Dosage: 25 MG, 2X/DAY
  2. BENICAR [Concomitant]
     Dosage: 20 MG, DAILY
  3. LIPITOR [Suspect]
     Indication: BLOOD CHOLESTEROL INCREASED
     Dosage: 40 MG, DAILY
     Route: 048

REACTIONS (1)
  - MYALGIA [None]
